FAERS Safety Report 9379491 (Version 3)
Quarter: 2013Q3

REPORT INFORMATION
  Report Type: Report from Study
  Country: DE (occurrence: DE)
  Receive Date: 20130702
  Receipt Date: 20130819
  Transmission Date: 20140515
  Serious: Yes (Hospitalization)
  Sender: FDA-Public Use
  Company Number: PHHY2013DE066929

PATIENT
  Sex: Female
  Weight: 72 kg

DRUGS (4)
  1. AFINITOR [Suspect]
     Indication: BREAST CANCER METASTATIC
     Dosage: 10 MG, QD
     Route: 048
     Dates: start: 20130528, end: 20130624
  2. EXEMESTANE [Concomitant]
     Indication: BREAST CANCER METASTATIC
     Dosage: 25 MG, QD
     Dates: start: 20130528, end: 20130624
  3. EXEMESTANE [Concomitant]
     Dosage: 25 MG, QD
     Dates: start: 20130704
  4. BISPHOSPHONATES [Concomitant]

REACTIONS (1)
  - General physical health deterioration [Recovered/Resolved]
